FAERS Safety Report 7356747-0 (Version None)
Quarter: 2011Q1

REPORT INFORMATION
  Report Type: 
  Country: None (occurrence: None)
  Receive Date: 20110316
  Receipt Date: 20110310
  Transmission Date: 20110831
  Serious: Yes (Hospitalization, Other)
  Sender: FDA-Public Use
  Company Number: US-MERCK-1102USA00356

PATIENT
  Age: 48 Year
  Sex: Male

DRUGS (9)
  1. AMITRIPTYLINE HYDROCHLORIDE [Concomitant]
     Route: 065
  2. NICOTINE [Concomitant]
     Route: 065
  3. MORPHINE [Concomitant]
     Route: 065
     Dates: start: 20110101
  4. PLAVIX [Concomitant]
     Indication: PAIN IN EXTREMITY
     Route: 065
     Dates: start: 20110105, end: 20110108
  5. PLAVIX [Concomitant]
     Route: 065
     Dates: start: 20110117
  6. HEPARIN [Suspect]
     Indication: PERIPHERAL EMBOLISM
     Route: 065
     Dates: start: 20110101, end: 20110101
  7. OXYCONTIN [Concomitant]
     Route: 065
  8. PEPCID [Suspect]
     Route: 048
     Dates: start: 20110108, end: 20110120
  9. GABAPENTIN [Concomitant]
     Route: 065

REACTIONS (2)
  - HEPARIN-INDUCED THROMBOCYTOPENIA [None]
  - LIMB INJURY [None]
